FAERS Safety Report 7659442-3 (Version None)
Quarter: 2011Q3

REPORT INFORMATION
  Report Type: 
  Country: None (occurrence: None)
  Receive Date: 20110804
  Receipt Date: 20110804
  Transmission Date: 20111222
  Serious: No
  Sender: FDA-Public Use
  Company Number: None

PATIENT
  Sex: Male
  Weight: 81.6475 kg

DRUGS (2)
  1. INVEGA SUSTENNA [Suspect]
     Indication: SCHIZOAFFECTIVE DISORDER
     Dosage: 220 MILLIGRAMS 1 PER MONTH INT
     Route: 042
     Dates: start: 20110727
  2. INVEGA SUSTENNA [Suspect]
     Indication: SCHIZOAFFECTIVE DISORDER
     Dosage: 220 MILLIGRAMS 1 PER MONTH INT
     Route: 042
     Dates: start: 20110101

REACTIONS (4)
  - ABSCESS [None]
  - CYST [None]
  - FURUNCLE [None]
  - DRUG HYPERSENSITIVITY [None]
